FAERS Safety Report 7079957-9 (Version None)
Quarter: 2010Q4

REPORT INFORMATION
  Report Type: 
  Country: None (occurrence: None)
  Receive Date: 20101102
  Receipt Date: 20101025
  Transmission Date: 20110411
  Serious: Yes (Death, Hospitalization)
  Sender: FDA-Public Use
  Company Number: US-CELGENEUS-163-21880-10032736

PATIENT
  Sex: Female

DRUGS (4)
  1. REVLIMID [Suspect]
     Route: 048
     Dates: start: 20090901, end: 20091001
  2. IMMUNE GLOBULIN INTRAVENOUS (HUMAN) [Concomitant]
     Route: 065
  3. SOLU-MEDROL [Concomitant]
     Route: 051
  4. ANAKINRA [Concomitant]
     Route: 058

REACTIONS (4)
  - BEHCET'S SYNDROME [None]
  - CELLULITIS [None]
  - SEPSIS [None]
  - THROMBOPHLEBITIS [None]
